FAERS Safety Report 5114876-6 (Version None)
Quarter: 2006Q3

REPORT INFORMATION
  Report Type: 
  Country: None (occurrence: None)
  Receive Date: 20060922
  Receipt Date: 20060922
  Transmission Date: 20061208
  Serious: Yes (Life-Threatening)
  Sender: FDA-Public Use
  Company Number: None

PATIENT
  Age: 92 Year
  Sex: Male
  Weight: 55 kg

DRUGS (12)
  1. DOBUTAMINE HCL IN DEXTROSE 5% [Suspect]
     Indication: ANGINA PECTORIS
     Dosage: 10.4 MG IV OVER 9 MINUTES
     Route: 042
     Dates: start: 20060727
  2. DOBUTAMINE HCL IN DEXTROSE 5% [Suspect]
     Indication: CARDIAC STRESS TEST
     Dosage: 10.4 MG IV OVER 9 MINUTES
     Route: 042
     Dates: start: 20060727
  3. TYLENOL (CAPLET) [Concomitant]
  4. ALBUTEROL [Concomitant]
  5. ASPIRIN [Concomitant]
  6. COREG [Concomitant]
  7. IRON [Concomitant]
  8. PROZAC [Concomitant]
  9. LASIX [Concomitant]
  10. LISINOPRIL [Concomitant]
  11. PROTONIX [Concomitant]
  12. EYE DROPS FOR GLAUCOMA [Concomitant]

REACTIONS (4)
  - ATRIAL FIBRILLATION [None]
  - INFUSION RELATED REACTION [None]
  - PROCEDURAL COMPLICATION [None]
  - VENTRICULAR TACHYCARDIA [None]
